FAERS Safety Report 4350148-5 (Version None)
Quarter: 2004Q2

REPORT INFORMATION
  Report Type: 
  Country: None (occurrence: None)
  Receive Date: 20040428
  Receipt Date: 20040428
  Transmission Date: 20050107
  Serious: Yes (Hospitalization)
  Sender: FDA-Public Use
  Company Number: None

PATIENT
  Sex: Male
  Weight: 78.9259 kg

DRUGS (11)
  1. MORPHINE [Suspect]
     Indication: PAIN
     Dosage: OCCASIONAL
  2. RISPERIDONE [Concomitant]
  3. SERTRALINE HCL [Concomitant]
  4. RABEPRAZOLE NA [Concomitant]
  5. GABAPENTIN [Concomitant]
  6. SYNTHROID [Concomitant]
  7. COUMADIN [Concomitant]
  8. LORAZEPAM [Concomitant]
  9. ALBUTEROL 3/IPRATROP INH [Concomitant]
  10. SENNOSIDES [Concomitant]
  11. GUAIFENESIN [Concomitant]

REACTIONS (1)
  - MENTAL STATUS CHANGES [None]
